FAERS Safety Report 6454766-X (Version None)
Quarter: 2009Q4

REPORT INFORMATION
  Report Type: 
  Country: None (occurrence: None)
  Receive Date: 20091118
  Receipt Date: 20091106
  Transmission Date: 20100525
  Serious: Yes (Death)
  Sender: FDA-Public Use
  Company Number: DSJ-2009-14736

PATIENT
  Age: 80 Year
  Sex: Male
  Weight: 68 kg

DRUGS (12)
  1. OLMESARTAN MEDOXOMIL [Suspect]
     Indication: HYPERTENSION
     Dosage: 20 MG, (20 MG, 1 IN 1 D), PER ORAL, 40 MG (40 MG, 1 IN 1 D), PER ORAL
     Route: 048
     Dates: start: 20091029, end: 20091030
  2. OLMESARTAN MEDOXOMIL [Suspect]
     Indication: HYPERTENSION
     Dosage: 20 MG, (20 MG, 1 IN 1 D), PER ORAL, 40 MG (40 MG, 1 IN 1 D), PER ORAL
     Route: 048
     Dates: start: 20091031, end: 20091102
  3. DEPAS (ETIZOLAM) (TABLET) (ETIZOLAM) [Concomitant]
  4. TRYPTANOL (AMITRIPTYLINE HYDROCHLORIDE) (TABLET) (AMITRIPTYLINE HYDROC [Concomitant]
  5. LUPRAC (TORASEMIDE) (TABLET) (TORASEMIDE) [Concomitant]
  6. PARIET (RABEPRAZOLE SODIUM) (TABLET) (RABEPRAZOLE SODIUM) [Concomitant]
  7. THEODUR (THEOPHYLLINE) (TABLET) (THEOPHYLLINE) [Concomitant]
  8. MUCODYNE (CARBOCISTEINE) (TABLET) (CARBOCISTEINE) [Concomitant]
  9. SINGULAIR (MONTELUKAST) (CHEWABLE TABLET) (MONTELUKAST) [Concomitant]
  10. AMOBAN (ZOPICLONE) (TABLET) (ZOPICLONE) [Concomitant]
  11. ADOAIR (FLUTICASONE PROPIONATE, SALMETEROL XINAFOATE) (INHALATION POWD [Concomitant]
  12. FLAVERIC (BENPROPERINE PHOSPHATE) (TABLET) (BENPROPERINE PHOSPHATE) [Concomitant]

REACTIONS (12)
  - ACCIDENTAL EXPOSURE [None]
  - ANURIA [None]
  - CARDIAC ARREST [None]
  - DECREASED ACTIVITY [None]
  - DEPRESSED LEVEL OF CONSCIOUSNESS [None]
  - DIARRHOEA [None]
  - HYPONATRAEMIA [None]
  - INFECTION [None]
  - METABOLIC ACIDOSIS [None]
  - RENAL FAILURE ACUTE [None]
  - SHOCK [None]
  - VOMITING [None]
